FAERS Safety Report 16790417 (Version 1)
Quarter: 2019Q4

REPORT INFORMATION
  Report Type: Spontaneous
  Country: US (occurrence: US)
  Receive Date: 20190909
  Receipt Date: 20190909
  Transmission Date: 20200122
  Serious: Yes (Hospitalization)
  Sender: FDA-Public Use
  Company Number: None

PATIENT
  Age: 35 Year
  Sex: Male

DRUGS (6)
  1. ETOPOSIDE. [Suspect]
     Active Substance: ETOPOSIDE
     Indication: BRAIN NEOPLASM MALIGNANT
     Route: 048
  2. LEVETIRACETAM. [Concomitant]
     Active Substance: LEVETIRACETAM
  3. GLIPIZIDE. [Concomitant]
     Active Substance: GLIPIZIDE
  4. MEMANTINE. [Concomitant]
     Active Substance: MEMANTINE
  5. CLONAZEPAM. [Concomitant]
     Active Substance: CLONAZEPAM
  6. PAROXETINE. [Concomitant]
     Active Substance: PAROXETINE

REACTIONS (2)
  - Dehydration [None]
  - Infection [None]

NARRATIVE: CASE EVENT DATE: 20190720
